FAERS Safety Report 9476768 (Version 2)
Quarter: 2013Q4

REPORT INFORMATION
  Report Type: Spontaneous
  Country: VE (occurrence: VE)
  Receive Date: 20130826
  Receipt Date: 20131001
  Transmission Date: 20140711
  Serious: Yes (Hospitalization, Other)
  Sender: FDA-Public Use
  Company Number: PHHY2013VE091198

PATIENT
  Age: 68 Year
  Sex: Female

DRUGS (5)
  1. FORADIL [Suspect]
     Indication: CHRONIC OBSTRUCTIVE PULMONARY DISEASE
     Dosage: 12 UG, BID
     Dates: start: 2005, end: 201305
  2. FORADIL [Suspect]
     Dosage: 12 UG, BID
     Dates: start: 201308
  3. MIFLONIDE [Suspect]
     Indication: CHRONIC OBSTRUCTIVE PULMONARY DISEASE
     Dosage: 400 MG, BID
     Dates: start: 2005, end: 201305
  4. MIFLONIDE [Suspect]
     Dosage: 400 MG, BID
     Dates: start: 201308
  5. SPIRIVA [Concomitant]
     Indication: CHRONIC OBSTRUCTIVE PULMONARY DISEASE
     Dosage: 1 DF, DAILY

REACTIONS (5)
  - Pneumonia [Recovered/Resolved]
  - Dyspnoea [Not Recovered/Not Resolved]
  - Hypoxia [Recovered/Resolved]
  - Movement disorder [Recovered/Resolved]
  - Feeling abnormal [Unknown]
